FAERS Safety Report 8533092-9 (Version None)
Quarter: 2012Q3

REPORT INFORMATION
  Report Type: 
  Country: None (occurrence: None)
  Receive Date: 20120711
  Receipt Date: 20120702
  Transmission Date: 20120928
  Serious: Yes (Other)
  Sender: FDA-Public Use
  Company Number: AUR-APL-2012-02901

PATIENT
  Age: 48 Year
  Sex: Female

DRUGS (2)
  1. LOPERAMIDE [Concomitant]
  2. GABAPENTIN [Suspect]
     Indication: PRODUCT USED FOR UNKNOWN INDICATION
     Dosage: (100 MG),ORAL
     Route: 048

REACTIONS (2)
  - MELAENA [None]
  - GASTROINTESTINAL HAEMORRHAGE [None]
